FAERS Safety Report 6620138-8 (Version None)
Quarter: 2010Q1

REPORT INFORMATION
  Report Type: 
  Country: None (occurrence: None)
  Receive Date: 20100309
  Receipt Date: 20051028
  Transmission Date: 20100710
  Serious: Yes (Disabling)
  Sender: FDA-Public Use
  Company Number: HQWYE305008SEP05

PATIENT
  Age: 46 Year
  Sex: Male
  Weight: 116.22 kg

DRUGS (3)
  1. NEUMEGA [Suspect]
     Indication: THROMBOCYTOPENIA
     Dosage: 5 MG (FREQUENCY NOT SPECIFIED)
     Route: 058
     Dates: start: 20050809, end: 20050813
  2. ARANESP [Concomitant]
     Indication: ANAEMIA
     Dosage: 500 MCG (FREQUENCY NOT SPECIFIED)
     Route: 065
     Dates: start: 20050614
  3. NEULASTA [Concomitant]
     Indication: NEUTROPENIA
     Dosage: 5 MG (FREQUENCY NOT SPECIFIED)
     Route: 065
     Dates: start: 20050809, end: 20050813

REACTIONS (1)
  - BONE PAIN [None]
